FAERS Safety Report 9381390 (Version 1)
Quarter: 2013Q3

REPORT INFORMATION
  Report Type: Spontaneous
  Country: GB (occurrence: GB)
  Receive Date: 20130703
  Receipt Date: 20130703
  Transmission Date: 20140515
  Serious: Yes (Other)
  Sender: FDA-Public Use
  Company Number: PHHY2013GB068397

PATIENT
  Age: 76 Year
  Sex: Female

DRUGS (9)
  1. STALEVO [Suspect]
     Indication: PARKINSON^S DISEASE
  2. ROTIGOTINE [Suspect]
     Indication: PARKINSON^S DISEASE
     Dosage: 12 MG, ONCE A DAY
  3. ATORVASTATIN [Concomitant]
  4. CO-CODAMOL [Concomitant]
  5. FUROSEMIDE [Concomitant]
  6. METFORMIN [Concomitant]
  7. RAMIPRIL [Concomitant]
  8. RASAGILINE [Concomitant]
     Indication: PARKINSON^S DISEASE
  9. SINEMET-CR [Concomitant]
     Indication: PARKINSON^S DISEASE

REACTIONS (3)
  - Femoral neck fracture [Unknown]
  - Fall [Unknown]
  - Agitation [Unknown]
